FAERS Safety Report 9138344 (Version 2)
Quarter: 2013Q4

REPORT INFORMATION
  Report Type: Spontaneous
  Country: US (occurrence: US)
  Receive Date: 20130305
  Receipt Date: 20131004
  Transmission Date: 20140711
  Serious: Yes (Hospitalization)
  Sender: FDA-Public Use
  Company Number: US-BIOGENIDEC-2013BI020264

PATIENT
  Age: 57 Year
  Sex: Male

DRUGS (2)
  1. TYSABRI [Suspect]
     Indication: MULTIPLE SCLEROSIS
     Route: 042
     Dates: start: 20070801
  2. TYSABRI [Suspect]
     Indication: MULTIPLE SCLEROSIS
     Route: 042
     Dates: start: 20080901, end: 20130124

REACTIONS (7)
  - Haemangioblastoma [Recovered/Resolved]
  - Stress [Unknown]
  - Optic neuritis [Unknown]
  - Tooth extraction [Recovered/Resolved]
  - Anxiety [Not Recovered/Not Resolved]
  - Phobia [Unknown]
  - Photophobia [Not Recovered/Not Resolved]
